FAERS Safety Report 6722535-9 (Version None)
Quarter: 2010Q2

REPORT INFORMATION
  Report Type: 
  Country: None (occurrence: None)
  Receive Date: 20100512
  Receipt Date: 20100505
  Transmission Date: 20101027
  Serious: Yes (Other)
  Sender: FDA-Public Use
  Company Number: GB-B.I. PHARMACEUTICALS,INC./RIDGEFIELD-2010-UK-00427UK

PATIENT
  Age: 87 Year
  Sex: Male

DRUGS (1)
  1. DIPYRIDAMOLE [Suspect]

REACTIONS (2)
  - CONFUSIONAL STATE [None]
  - ORTHOSTATIC HYPOTENSION [None]
